FAERS Safety Report 7414492-7 (Version None)
Quarter: 2011Q2

REPORT INFORMATION
  Report Type: 
  Country: None (occurrence: None)
  Receive Date: 20110414
  Receipt Date: 20110402
  Transmission Date: 20111010
  Serious: Yes (Other)
  Sender: FDA-Public Use
  Company Number: IT-JNJFOC-20110200732

PATIENT
  Sex: Male

DRUGS (1)
  1. MYLICONGAS [Suspect]
     Indication: PRODUCT USED FOR UNKNOWN INDICATION

REACTIONS (2)
  - TOXIC EPIDERMAL NECROLYSIS [None]
  - TOXICITY TO VARIOUS AGENTS [None]
